FAERS Safety Report 8471388-X (Version None)
Quarter: 2012Q2

REPORT INFORMATION
  Report Type: 
  Country: None (occurrence: None)
  Receive Date: 20120627
  Receipt Date: 20120615
  Transmission Date: 20120825
  Serious: Yes (Other)
  Sender: FDA-Public Use
  Company Number: FR-PFIZER INC-2012143585

PATIENT
  Sex: Male

DRUGS (2)
  1. LAMICTAL [Concomitant]
     Dosage: UNK
  2. CRIZOTINIB [Suspect]
     Dosage: UNK
     Dates: start: 20120501

REACTIONS (1)
  - EPILEPSY [None]
